FAERS Safety Report 4295593-1 (Version None)
Quarter: 2004Q1

REPORT INFORMATION
  Report Type: 
  Country: None (occurrence: None)
  Receive Date: 20040216
  Receipt Date: 20030728
  Transmission Date: 20041129
  Serious: No
  Sender: FDA-Public Use
  Company Number: US-GLAXOSMITHKLINE-A0418406A

PATIENT
  Age: 57 Year
  Sex: Female

DRUGS (9)
  1. PAXIL [Suspect]
     Indication: VERTIGO
     Dosage: 30MG PER DAY
     Route: 048
     Dates: start: 19990101, end: 20030715
  2. PROMETHAZINE [Concomitant]
  3. HYDROCHLOROTHIAZIDE [Concomitant]
     Indication: BLOOD PRESSURE
  4. PREVACID [Concomitant]
  5. POTASSIUM [Concomitant]
  6. BUSPAR [Concomitant]
  7. ALBUTEROL [Concomitant]
  8. TRAZODONE HCL [Concomitant]
  9. ACCOLATE [Concomitant]

REACTIONS (2)
  - DIZZINESS [None]
  - NAUSEA [None]
